FAERS Safety Report 10471637 (Version 1)
Quarter: 2014Q3

REPORT INFORMATION
  Report Type: Spontaneous
  Country: US (occurrence: US)
  Receive Date: 20140923
  Receipt Date: 20140923
  Transmission Date: 20150326
  Serious: Yes (Other)
  Sender: FDA-Public Use
  Company Number: PHEH2014US017851

PATIENT
  Age: 40 Year
  Sex: Female

DRUGS (16)
  1. GLEEVEC [Suspect]
     Active Substance: IMATINIB MESYLATE
     Dosage: 300 MG, DAILY
     Route: 048
  2. ERGOCALCIFEROL. [Concomitant]
     Active Substance: ERGOCALCIFEROL
     Dosage: ONCE A DAY
     Route: 048
  3. PREDNISONE. [Concomitant]
     Active Substance: PREDNISONE
     Dosage: 50 MG, FOR A DAY
  4. PREDNISONE. [Concomitant]
     Active Substance: PREDNISONE
     Dosage: 40 MG, FOR A DAY
  5. HIDROCORTISON [Concomitant]
     Dosage: 10 MG, QID
     Route: 048
  6. PREDNISONE. [Concomitant]
     Active Substance: PREDNISONE
     Dosage: 90 MG, FOR A DAY
  7. PREDNISONE. [Concomitant]
     Active Substance: PREDNISONE
     Dosage: 20 MG, FOR A DAY
  8. ZYRTEC [Concomitant]
     Active Substance: CETIRIZINE HYDROCHLORIDE
     Dosage: 10 MG, ONE PER ORAL BEDTIME
     Route: 048
  9. PREDNISONE. [Concomitant]
     Active Substance: PREDNISONE
     Dosage: 30 MG, FOR A DAY
  10. PREDNISONE. [Concomitant]
     Active Substance: PREDNISONE
     Dosage: 80 MG, FOR A DAY
  11. VFEND [Concomitant]
     Active Substance: VORICONAZOLE
  12. PREDNISONE. [Concomitant]
     Active Substance: PREDNISONE
     Dosage: 100 MG, FOR 5 DAYS
     Route: 048
  13. PREDNISONE. [Concomitant]
     Active Substance: PREDNISONE
     Dosage: 60 MG, FOR A DAY
  14. GLEEVEC [Suspect]
     Active Substance: IMATINIB MESYLATE
     Indication: ACUTE LYMPHOCYTIC LEUKAEMIA
     Dosage: 300 MG, DAILY
     Dates: start: 20120106, end: 201205
  15. PREDNISONE. [Concomitant]
     Active Substance: PREDNISONE
     Dosage: 70 MG, FOR A DAY
  16. PREDNISONE. [Concomitant]
     Active Substance: PREDNISONE
     Dosage: 10 MG, FOR A DAY

REACTIONS (13)
  - Gastrointestinal disorder [Unknown]
  - Platelet count decreased [Unknown]
  - Graft versus host disease in skin [Unknown]
  - Diarrhoea [Unknown]
  - Abdominal discomfort [Unknown]
  - Nausea [Unknown]
  - Adrenal insufficiency [Unknown]
  - Pneumonia [Unknown]
  - Vomiting [Unknown]
  - Oedema [Unknown]
  - Haemoglobin decreased [Unknown]
  - Heart rate increased [Unknown]
  - Muscle spasms [Unknown]

NARRATIVE: CASE EVENT DATE: 201206
